FAERS Safety Report 23264540 (Version 1)
Quarter: 2023Q4

REPORT INFORMATION
  Report Type: Spontaneous
  Country: US (occurrence: US)
  Receive Date: 20231205
  Receipt Date: 20231205
  Transmission Date: 20240109
  Serious: No
  Sender: FDA-Public Use
  Company Number: US-CELLTRION INC.-2023US009003

PATIENT

DRUGS (4)
  1. TRUXIMA [Suspect]
     Active Substance: RITUXIMAB-ABBS
     Indication: Chronic lymphocytic leukaemia
     Dosage: 500 MILLIGRAM
  2. TRUXIMA [Suspect]
     Active Substance: RITUXIMAB-ABBS
     Indication: Immune thrombocytopenia
     Dosage: 100 MILLIGRAM
  3. TRUXIMA [Suspect]
     Active Substance: RITUXIMAB-ABBS
     Dosage: 600 MG IV, EVERY WEEKLY FOR 4 TREATMENTS
     Route: 042
     Dates: start: 20230106
  4. TRUXIMA [Suspect]
     Active Substance: RITUXIMAB-ABBS
     Dosage: 600 MG IV, EVERY WEEKLY FOR 4 TREATMENTS
     Route: 042
     Dates: start: 20230113

REACTIONS (3)
  - Malaise [Recovered/Resolved]
  - Intentional dose omission [Recovered/Resolved]
  - Intentional product use issue [Unknown]

NARRATIVE: CASE EVENT DATE: 20230120
